FAERS Safety Report 9180183 (Version 1)
Quarter: 2013Q1

REPORT INFORMATION
  Report Type: Spontaneous
  Country: PH (occurrence: PH)
  Receive Date: 20130321
  Receipt Date: 20130321
  Transmission Date: 20140127
  Serious: Yes (Death)
  Sender: FDA-Public Use
  Company Number: PH-009507513-1303PHL009832

PATIENT
  Age: 73 Year
  Sex: Male

DRUGS (1)
  1. JANUMET [Suspect]
     Dosage: 1 TABLET, ONCE A DAY
     Route: 048

REACTIONS (1)
  - Cardiac arrest [Fatal]
